FAERS Safety Report 16075365 (Version 1)
Quarter: 2019Q1

REPORT INFORMATION
  Report Type: Spontaneous
  Country: AR (occurrence: AR)
  Receive Date: 20190315
  Receipt Date: 20190315
  Transmission Date: 20190418
  Serious: Yes (Other)
  Sender: FDA-Public Use
  Company Number: AR-009507513-1903ARG003467

PATIENT
  Age: 23 Year
  Sex: Male

DRUGS (1)
  1. FINASTERIDE. [Suspect]
     Active Substance: FINASTERIDE
     Indication: ANDROGENETIC ALOPECIA
     Dosage: 1 MILLIGRAM, QD
     Route: 048

REACTIONS (23)
  - Panic attack [Not Recovered/Not Resolved]
  - Affective disorder [Not Recovered/Not Resolved]
  - Eye pain [Recovering/Resolving]
  - Libido decreased [Recovering/Resolving]
  - Xerophthalmia [Recovering/Resolving]
  - Hypospermia [Recovering/Resolving]
  - Orgasmic sensation decreased [Recovering/Resolving]
  - Penile size reduced [Recovering/Resolving]
  - Penile pain [Recovering/Resolving]
  - Ocular hyperaemia [Recovering/Resolving]
  - Photophobia [Recovering/Resolving]
  - Perineal pain [Recovering/Resolving]
  - Vitreous floaters [Not Recovered/Not Resolved]
  - Arthralgia [Recovering/Resolving]
  - Testicular pain [Recovering/Resolving]
  - Headache [Recovering/Resolving]
  - Penile vascular disorder [Recovering/Resolving]
  - Erectile dysfunction [Recovering/Resolving]
  - Insomnia [Not Recovered/Not Resolved]
  - Organic erectile dysfunction [Recovering/Resolving]
  - Asthenia [Recovering/Resolving]
  - Myalgia [Recovering/Resolving]
  - Semen viscosity decreased [Recovering/Resolving]
